FAERS Safety Report 20407266 (Version 1)
Quarter: 2022Q1

REPORT INFORMATION
  Report Type: Spontaneous
  Country: US (occurrence: None)
  Receive Date: 20220131
  Receipt Date: 20220131
  Transmission Date: 20220423
  Serious: Yes (Life-Threatening)
  Sender: FDA-Public Use
  Company Number: None

PATIENT
  Age: 33 Year
  Sex: Male
  Weight: 86.18 kg

DRUGS (1)
  1. ZUBSOLV [Suspect]
     Active Substance: BUPRENORPHINE HYDROCHLORIDE\NALOXONE HYDROCHLORIDE
     Indication: Drug abuse
     Dosage: FREQUENCY : TWICE A DAY;  ZUBSOLV 11.4/2.9?
     Route: 060
     Dates: start: 20220115, end: 20220117

REACTIONS (3)
  - Pharyngeal swelling [None]
  - Nausea [None]
  - Oral discomfort [None]

NARRATIVE: CASE EVENT DATE: 20220115
